FAERS Safety Report 10766949 (Version 2)
Quarter: 2015Q1

REPORT INFORMATION
  Report Type: Spontaneous
  Country: JP (occurrence: JP)
  Receive Date: 20150205
  Receipt Date: 20150211
  Transmission Date: 20150721
  Serious: Yes (Other)
  Sender: FDA-Public Use
  Company Number: JP-TEVA-537931ISR

PATIENT
  Age: 76 Year
  Sex: Male

DRUGS (4)
  1. QUAZEPAM. [Concomitant]
     Active Substance: QUAZEPAM
     Indication: DEPRESSION
     Dosage: 15 MILLIGRAM DAILY; 15 MG/DAY
     Route: 065
  2. PAROXETINE [Suspect]
     Active Substance: PAROXETINE\PAROXETINE HYDROCHLORIDE
     Indication: DEPRESSION
     Dosage: 10 MILLIGRAM DAILY; 10 MG/DAY
     Route: 065
  3. ALPRAZOLAM. [Concomitant]
     Active Substance: ALPRAZOLAM
     Indication: DEPRESSION
     Dosage: 1.2 MILLIGRAM DAILY; 1.2 MG/DAY
     Route: 065
  4. PAROXETINE [Suspect]
     Active Substance: PAROXETINE\PAROXETINE HYDROCHLORIDE
     Dosage: 20 MILLIGRAM DAILY; 20 MG/DAY
     Route: 065

REACTIONS (1)
  - Status epilepticus [Recovered/Resolved]
